FAERS Safety Report 6213269-8 (Version None)
Quarter: 2009Q2

REPORT INFORMATION
  Report Type: 
  Country: None (occurrence: None)
  Receive Date: 20090603
  Receipt Date: 20090527
  Transmission Date: 20091009
  Serious: Yes (Disabling)
  Sender: FDA-Public Use
  Company Number: PR-MERCK-0805USA02780

PATIENT
  Age: 66 Year
  Sex: Female

DRUGS (2)
  1. FOSAMAX [Suspect]
     Indication: OSTEOPOROSIS
     Route: 048
     Dates: start: 20001101, end: 20040101
  2. FOSAMAX [Suspect]
     Indication: OSTEOPENIA
     Route: 048
     Dates: start: 20001101, end: 20040101

REACTIONS (11)
  - GASTROOESOPHAGEAL REFLUX DISEASE [None]
  - GINGIVITIS [None]
  - HAEMORRHAGE [None]
  - HIATUS HERNIA [None]
  - JAW DISORDER [None]
  - LOOSE TOOTH [None]
  - ORAL INFECTION [None]
  - OSTEONECROSIS [None]
  - REFLUX GASTRITIS [None]
  - SWELLING [None]
  - TOOTH FRACTURE [None]
